FAERS Safety Report 4752540-3 (Version None)
Quarter: 2005Q3

REPORT INFORMATION
  Report Type: 
  Country: None (occurrence: None)
  Receive Date: 20050823
  Receipt Date: 20050810
  Transmission Date: 20060218
  Serious: Yes (Death, Life-Threatening, Hospitalization)
  Sender: FDA-Public Use
  Company Number: EWC050543855

PATIENT
  Age: 71 Year
  Sex: Male
  Weight: 56 kg

DRUGS (10)
  1. ALIMTA [Suspect]
     Indication: MESOTHELIOMA
     Dosage: 800 MG/1 OTHER
     Route: 050
     Dates: start: 20041021, end: 20050427
  2. CARBOPLATIN [Suspect]
     Indication: MESOTHELIOMA
     Dosage: 450 MG/1 OTHER
     Route: 050
     Dates: start: 20041021, end: 20050427
  3. PROPAFENONE HCL [Concomitant]
  4. WARFARIN [Concomitant]
  5. TIZANIDINE HCL [Concomitant]
  6. DEXAMETHASONE [Concomitant]
  7. FINASTERIDE [Concomitant]
  8. FOLIC ACID [Concomitant]
  9. VITAMIN B-12 [Concomitant]
  10. OMEPRAZOLE [Concomitant]

REACTIONS (14)
  - CARDIAC ARREST [None]
  - COMA [None]
  - DYSPNOEA [None]
  - GENERAL PHYSICAL HEALTH DETERIORATION [None]
  - HYPERCAPNIA [None]
  - HYPOXIA [None]
  - LEUKOPENIA [None]
  - LUNG DISORDER [None]
  - MYOCARDIAL ISCHAEMIA [None]
  - PLEURAL EFFUSION [None]
  - PNEUMONIA [None]
  - PULMONARY MASS [None]
  - RESPIRATORY FAILURE [None]
  - SEPTIC SHOCK [None]
